FAERS Safety Report 6971987-8 (Version None)
Quarter: 2010Q3

REPORT INFORMATION
  Report Type: 
  Country: None (occurrence: None)
  Receive Date: 20100908
  Receipt Date: 20100908
  Transmission Date: 20110219
  Serious: Yes (Other)
  Sender: FDA-Public Use
  Company Number: None

PATIENT
  Sex: Female

DRUGS (1)
  1. KEPPRA [Suspect]
     Dosage: KEPPRA 2500MG/DAY
     Dates: start: 20100401

REACTIONS (2)
  - AURA [None]
  - PRODUCT SUBSTITUTION ISSUE [None]
